FAERS Safety Report 5645098-8 (Version None)
Quarter: 2008Q1

REPORT INFORMATION
  Report Type: 
  Country: None (occurrence: None)
  Receive Date: 20080229
  Receipt Date: 20080218
  Transmission Date: 20080703
  Serious: Yes (Hospitalization)
  Sender: FDA-Public Use
  Company Number: ES-ROCHE-522581

PATIENT
  Age: 44 Year
  Sex: Male

DRUGS (5)
  1. PEG-INTERFERON ALFA 2A (RO 25-8310) [Suspect]
     Indication: DRUG USE FOR UNKNOWN INDICATION
     Dosage: FREQUENCY REPORTED AS WEEKLY.
     Route: 058
     Dates: start: 20070209, end: 20071001
  2. RIBAVIRIN [Suspect]
     Indication: DRUG USE FOR UNKNOWN INDICATION
     Dosage: DRUG NAME REPORTED AS RIBAVIRINA, DOSE FORM REPORTED AS COMP
     Route: 048
     Dates: start: 20070209, end: 20071001
  3. LAMIVUDINE [Concomitant]
     Indication: DRUG USE FOR UNKNOWN INDICATION
     Dates: start: 20011122
  4. EFAVIRENZ [Concomitant]
     Indication: DRUG USE FOR UNKNOWN INDICATION
     Dates: start: 20011122
  5. ABACAVIR [Concomitant]
     Indication: DRUG USE FOR UNKNOWN INDICATION
     Dates: start: 20011122

REACTIONS (2)
  - CARDIAC FAILURE [None]
  - MYOCARDITIS [None]
